APPROVED DRUG PRODUCT: LORATADINE
Active Ingredient: LORATADINE
Strength: 10MG
Dosage Form/Route: CAPSULE;ORAL
Application: A211900 | Product #001
Applicant: AUROBINDO PHARMA LTD
Approved: Mar 24, 2023 | RLD: No | RS: No | Type: OTC